FAERS Safety Report 4611077-2 (Version None)
Quarter: 2005Q1

REPORT INFORMATION
  Report Type: 
  Country: None (occurrence: None)
  Receive Date: 20050316
  Receipt Date: 20050316
  Transmission Date: 20050727
  Serious: Yes (Hospitalization)
  Sender: FDA-Public Use
  Company Number: None

PATIENT
  Age: 62 Year
  Sex: Male
  Weight: 83.5 kg

DRUGS (20)
  1. DIGOXIN [Suspect]
     Indication: ATRIAL FIBRILLATION
     Dosage: 0.375 MG, 0.375MG ORAL
     Route: 048
  2. ALBUTEROL SULFATE AND IPRATROPIUM BROMIDE [Concomitant]
  3. RANITIDINE HCL [Concomitant]
  4. TRIAMCINOLONE [Concomitant]
  5. ALPRAZOLAM [Concomitant]
  6. ARTIFICIAL TEARS POLYVINYL ALCOHOL [Concomitant]
  7. COUMADIN [Concomitant]
  8. FOSINOPRIL [Concomitant]
  9. FUROSEMIDE [Concomitant]
  10. GEMFIBROZIL [Concomitant]
  11. INSULIN REG HUMAN NOVOLIN R [Concomitant]
  12. NITROGLYCERIN [Concomitant]
  13. POTASSIUM CHLORIDE [Concomitant]
  14. SIMVASTATIN [Concomitant]
  15. DOCUSATE NA [Concomitant]
  16. BISACODYL [Concomitant]
  17. AMIODARONE HCL [Concomitant]
  18. COLCHICINE [Concomitant]
  19. NITROGLYCERIN [Concomitant]
  20. ALLOPURINOL [Concomitant]

REACTIONS (1)
  - DRUG TOXICITY [None]
